FAERS Safety Report 10749099 (Version 1)
Quarter: 2015Q1

REPORT INFORMATION
  Report Type: Spontaneous
  Country: US (occurrence: None)
  Receive Date: 20150116
  Receipt Date: 20150116
  Transmission Date: 20150721
  Serious: Yes (Other)
  Sender: FDA-Public Use
  Company Number: 2014SUN02442

PATIENT
  Age: 81 Year
  Sex: Male
  Weight: 81.6 kg

DRUGS (1)
  1. QUETIAPINE FUMARATE. [Suspect]
     Active Substance: QUETIAPINE FUMARATE
     Indication: SLEEP DISORDER
     Dosage: 50 MG, ONE TABLET AT BED TIME, ORAL
     Route: 048
     Dates: start: 201407, end: 20141102

REACTIONS (5)
  - Headache [None]
  - Rhinorrhoea [None]
  - Ear disorder [None]
  - Vertigo [None]
  - Hallucination [None]
